FAERS Safety Report 20815789 (Version 2)
Quarter: 2022Q4

REPORT INFORMATION
  Report Type: Report from Study
  Country: GB (occurrence: GB)
  Receive Date: 20220511
  Receipt Date: 20221227
  Transmission Date: 20230113
  Serious: Yes (Hospitalization)
  Sender: FDA-Public Use
  Company Number: GB-ROCHE-3088164

PATIENT
  Age: 83 Year
  Sex: Female

DRUGS (15)
  1. PACLITAXEL [Suspect]
     Active Substance: PACLITAXEL
     Indication: Breast cancer metastatic
     Dosage: 108 MILLIGRAM, QW
     Route: 042
     Dates: start: 20170512, end: 20170605
  2. DOCETAXEL [Suspect]
     Active Substance: DOCETAXEL
     Indication: Breast cancer metastatic
     Dosage: 72 MILLIGRAM, Q3W
     Route: 042
     Dates: start: 20170330, end: 20170421
  3. TRASTUZUMAB [Suspect]
     Active Substance: TRASTUZUMAB
     Indication: Breast cancer metastatic
     Dosage: 273 MILLIGRAM, Q3W
     Route: 042
     Dates: start: 20170329, end: 20171211
  4. TRASTUZUMAB [Suspect]
     Active Substance: TRASTUZUMAB
     Dosage: 294 MILLIGRAM, Q3W
     Route: 042
     Dates: start: 20180105, end: 20180329
  5. PERTUZUMAB [Suspect]
     Active Substance: PERTUZUMAB
     Indication: Breast cancer
     Dosage: 420 MILLIGRAM, Q3W
     Route: 042
     Dates: start: 20170330
  6. PERTUZUMAB [Suspect]
     Active Substance: PERTUZUMAB
     Indication: Breast cancer metastatic
  7. ADO-TRASTUZUMAB EMTANSINE [Suspect]
     Active Substance: ADO-TRASTUZUMAB EMTANSINE
     Indication: Breast cancer
     Dosage: 160 MILLIGRAM, Q3W
     Route: 042
     Dates: start: 20180420, end: 20181008
  8. ADO-TRASTUZUMAB EMTANSINE [Suspect]
     Active Substance: ADO-TRASTUZUMAB EMTANSINE
     Indication: Breast cancer metastatic
     Dosage: 148 MILLIGRAM, Q3W
     Route: 042
     Dates: start: 20181029, end: 20181210
  9. AMBROXOL HYDROCHLORIDE [Concomitant]
     Active Substance: AMBROXOL HYDROCHLORIDE
     Dosage: UNK
     Route: 048
     Dates: start: 20201126
  10. AMOXICILLIN [Concomitant]
     Active Substance: AMOXICILLIN
     Dosage: 1 GRAM, QD
     Route: 042
     Dates: start: 20201126, end: 20201126
  11. ATENOLOL [Concomitant]
     Active Substance: ATENOLOL
     Dosage: 25 MILLIGRAM
     Route: 048
  12. CO-AMILOZIDE VANNIER [Concomitant]
     Dosage: 2.5 MILLIGRAM, QD
     Route: 048
  13. GENTAMICIN [Concomitant]
     Active Substance: GENTAMICIN
     Dosage: 120 MILLIGRAM, QD
     Route: 042
     Dates: start: 20201126, end: 20201126
  14. LEVOTHYROXINE SODIUM [Concomitant]
     Active Substance: LEVOTHYROXINE SODIUM
     Dosage: 75 MICROGRAM, QD
     Route: 048
  15. MORPHINE [Concomitant]
     Active Substance: MORPHINE
     Dosage: UNK
     Route: 042
     Dates: start: 20190927, end: 20190927

REACTIONS (3)
  - Hypothermia [Recovered/Resolved]
  - Fall [Unknown]
  - Urinary tract infection [Recovered/Resolved]

NARRATIVE: CASE EVENT DATE: 20201119
